FAERS Safety Report 12214378 (Version 2)
Quarter: 2016Q2

REPORT INFORMATION
  Report Type: Report from Study
  Country: FR (occurrence: FR)
  Receive Date: 20160328
  Receipt Date: 20160511
  Transmission Date: 20160815
  Serious: Yes (Death)
  Sender: FDA-Public Use
  Company Number: FR-BAYER-2015-359917

PATIENT
  Age: 54 Year
  Sex: Female
  Weight: 47 kg

DRUGS (2)
  1. SORAFENIB (RAF KINASE INHIBITOR) [Suspect]
     Active Substance: SORAFENIB
     Indication: PANCREATIC CARCINOMA STAGE IV
     Dosage: 800 MG ONCE A DAY
     Route: 048
     Dates: start: 20150521, end: 20150616
  2. SORAFENIB (RAF KINASE INHIBITOR) [Suspect]
     Active Substance: SORAFENIB
     Indication: METASTASES TO LUNG

REACTIONS (2)
  - Melaena [Fatal]
  - Haemodynamic instability [Fatal]

NARRATIVE: CASE EVENT DATE: 20150617
